FAERS Safety Report 15283416 (Version 5)
Quarter: 2023Q4

REPORT INFORMATION
  Report Type: Spontaneous
  Country: US (occurrence: US)
  Receive Date: 20180816
  Receipt Date: 20231005
  Transmission Date: 20240110
  Serious: No
  Sender: FDA-Public Use
  Company Number: US-PFIZER INC-2018327717

PATIENT
  Age: 67 Year
  Sex: Female
  Weight: 71.202 kg

DRUGS (3)
  1. PREMARIN [Suspect]
     Active Substance: ESTROGENS, CONJUGATED
     Indication: Atrophic vulvovaginitis
     Dosage: 1 G, DAILY
     Route: 067
     Dates: start: 20230712
  2. PREMARIN [Suspect]
     Active Substance: ESTROGENS, CONJUGATED
     Dosage: 1 G, 2X/WEEK
     Route: 067
     Dates: start: 202307
  3. PROGESTERONE [Concomitant]
     Active Substance: PROGESTERONE
     Indication: Atrophic vulvovaginitis
     Dosage: UNK
     Dates: start: 20230712

REACTIONS (1)
  - Off label use [Unknown]

NARRATIVE: CASE EVENT DATE: 20230701
